FAERS Safety Report 10967929 (Version 1)
Quarter: 2015Q1

REPORT INFORMATION
  Report Type: Report from Study
  Country: US (occurrence: US)
  Receive Date: 20150330
  Receipt Date: 20150330
  Transmission Date: 20150721
  Serious: Yes (Other)
  Sender: FDA-Public Use
  Company Number: US-SA-2015SA016877

PATIENT
  Age: 58 Year
  Sex: Female

DRUGS (1)
  1. AUBAGIO [Suspect]
     Active Substance: TERIFLUNOMIDE
     Indication: MULTIPLE SCLEROSIS
     Route: 048
     Dates: start: 20150108, end: 20150123

REACTIONS (7)
  - Myalgia [Recovering/Resolving]
  - Paraesthesia [Recovering/Resolving]
  - Disorientation [Recovering/Resolving]
  - Influenza [Recovering/Resolving]
  - Pneumonia [Unknown]
  - Musculoskeletal chest pain [Recovering/Resolving]
  - Panic reaction [Recovering/Resolving]

NARRATIVE: CASE EVENT DATE: 2015
